FAERS Safety Report 5244134-0 (Version None)
Quarter: 2007Q1

REPORT INFORMATION
  Report Type: 
  Country: None (occurrence: None)
  Receive Date: 20061201
  Receipt Date: 20060818
  Transmission Date: 20070707
  Serious: No
  Sender: FDA-Public Use
  Company Number: 2006PV019685

PATIENT
  Age: 53 Year
  Sex: Female
  Weight: 106.1417 kg

DRUGS (8)
  1. BYETTA [Suspect]
     Indication: DIABETES MELLITUS NON-INSULIN-DEPENDENT
     Dosage: 10 MCG; 5 MCG; BID; SC
     Route: 058
     Dates: start: 20060701, end: 20060801
  2. BYETTA [Suspect]
     Indication: DIABETES MELLITUS NON-INSULIN-DEPENDENT
     Dosage: 10 MCG; 5 MCG; BID; SC
     Route: 058
     Dates: start: 20060818
  3. LASIX [Suspect]
     Indication: FLUID RETENTION
     Dosage: QAM; PO
     Route: 048
     Dates: start: 20060818
  4. METFORMIN [Concomitant]
  5. GLYBURIDE [Concomitant]
  6. GLUCOVANCE [Concomitant]
  7. DIOVAN [Concomitant]
  8. PREVACID [Concomitant]

REACTIONS (7)
  - BLOOD GLUCOSE DECREASED [None]
  - BLOOD GLUCOSE INCREASED [None]
  - CONDITION AGGRAVATED [None]
  - DYSPEPSIA [None]
  - FLUID RETENTION [None]
  - NAUSEA [None]
  - WEIGHT DECREASED [None]
